FAERS Safety Report 17035489 (Version 1)
Quarter: 2019Q4

REPORT INFORMATION
  Report Type: Report from Study
  Country: GB (occurrence: GB)
  Receive Date: 20191115
  Receipt Date: 20191115
  Transmission Date: 20200122
  Serious: Yes (Other)
  Sender: FDA-Public Use
  Company Number: PHHY2018GB042363

PATIENT
  Age: 28 Year
  Sex: Female

DRUGS (1)
  1. GILENYA [Suspect]
     Active Substance: FINGOLIMOD HYDROCHLORIDE
     Indication: MULTIPLE SCLEROSIS
     Dosage: UNK, QD
     Route: 048
     Dates: start: 20130930, end: 20160204

REACTIONS (20)
  - Hypoaesthesia [Unknown]
  - Weight increased [Unknown]
  - Muscle tightness [Unknown]
  - Menstruation irregular [Recovered/Resolved]
  - Constipation [Unknown]
  - Fatigue [Unknown]
  - Burning sensation [Unknown]
  - Abdominal discomfort [Unknown]
  - Upper respiratory tract infection [Unknown]
  - Anxiety [Unknown]
  - Hypothyroidism [Unknown]
  - Thyroid disorder [Unknown]
  - Mouth ulceration [Recovered/Resolved]
  - Blood thyroid stimulating hormone decreased [Recovered/Resolved]
  - Palpitations [Unknown]
  - Paraesthesia [Unknown]
  - Lymphocyte count decreased [Unknown]
  - Depression [Unknown]
  - Feeling cold [Unknown]
  - Muscular weakness [Unknown]

NARRATIVE: CASE EVENT DATE: 20131029
